FAERS Safety Report 7542458-5 (Version None)
Quarter: 2011Q2

REPORT INFORMATION
  Report Type: 
  Country: None (occurrence: None)
  Receive Date: 20110613
  Receipt Date: 20110609
  Transmission Date: 20111010
  Serious: Yes (Death, Hospitalization)
  Sender: FDA-Public Use
  Company Number: FR-ABBOTT-11P-056-0724746-00

PATIENT
  Age: 59 Year
  Sex: Male
  Weight: 85 kg

DRUGS (6)
  1. REMICADE [Suspect]
     Indication: RHEUMATOID ARTHRITIS
     Dates: end: 20070401
  2. RIFAMPIN AND ISONIAZID [Concomitant]
     Indication: ANTIBIOTIC PROPHYLAXIS
     Dates: start: 20030901
  3. HUMIRA [Suspect]
     Indication: RHEUMATOID ARTHRITIS
     Route: 058
     Dates: start: 20030901
  4. ARAVA [Concomitant]
     Indication: RHEUMATOID ARTHRITIS
  5. HUMIRA [Suspect]
     Route: 058
     Dates: start: 20050228
  6. NSAI (NOS) [Concomitant]
     Indication: RHEUMATOID ARTHRITIS

REACTIONS (6)
  - SKIN LESION [None]
  - CARDIAC ARREST [None]
  - SUPERINFECTION [None]
  - CARDIAC VALVE DISEASE [None]
  - CARDIAC DISORDER [None]
  - LUNG ADENOCARCINOMA [None]
